FAERS Safety Report 20471813 (Version 3)
Quarter: 2022Q3

REPORT INFORMATION
  Report Type: Spontaneous
  Country: US (occurrence: US)
  Receive Date: 20220214
  Receipt Date: 20220928
  Transmission Date: 20221026
  Serious: No
  Sender: FDA-Public Use
  Company Number: US-PFIZER INC-202200194311

PATIENT
  Age: 53 Year
  Sex: Female

DRUGS (1)
  1. XELJANZ XR [Suspect]
     Active Substance: TOFACITINIB CITRATE
     Indication: Rheumatoid arthritis
     Dosage: 11 MG

REACTIONS (4)
  - Therapeutic product effect incomplete [Not Recovered/Not Resolved]
  - Hepatic steatosis [Unknown]
  - Arthralgia [Unknown]
  - Radicular pain [Unknown]
